FAERS Safety Report 4438095-1 (Version None)
Quarter: 2004Q3

REPORT INFORMATION
  Report Type: 
  Country: None (occurrence: None)
  Receive Date: 20040831
  Receipt Date: 20040519
  Transmission Date: 20050211
  Serious: No
  Sender: FDA-Public Use
  Company Number: US-GLAXOSMITHKLINE-A0511471A

PATIENT
  Age: 38 Year
  Sex: Male

DRUGS (3)
  1. WELLBUTRIN XL [Suspect]
     Dosage: 300MG PER DAY
     Route: 048
     Dates: start: 20040501
  2. NORCO [Concomitant]
  3. SOMA [Concomitant]

REACTIONS (2)
  - ABDOMINAL PAIN UPPER [None]
  - NERVOUSNESS [None]
